FAERS Safety Report 6740739-6 (Version None)
Quarter: 2010Q2

REPORT INFORMATION
  Report Type: 
  Country: None (occurrence: None)
  Receive Date: 20100520
  Receipt Date: 20091013
  Transmission Date: 20101027
  Serious: Yes (Other)
  Sender: FDA-Public Use
  Company Number: 2006150415

PATIENT
  Age: 33 Year
  Sex: Female

DRUGS (6)
  1. DEPO-PROVERA [Suspect]
     Indication: CONTRACEPTION
     Dosage: INTRAMUSCULAR
     Route: 030
     Dates: start: 19941001, end: 20051001
  2. MULTIVITAMINS (ASCORBIC ACID, ERGOCALCIFEROL, FOLIC ACID, NICOTINAMIDE [Concomitant]
  3. CALCIUM (CALCIUM) [Concomitant]
  4. AMBIEN [Concomitant]
  5. BACLOFEN [Concomitant]
  6. ZYRTEC [Concomitant]

REACTIONS (1)
  - OSTEOPOROSIS [None]
